FAERS Safety Report 14435793 (Version 1)
Quarter: 2018Q1

REPORT INFORMATION
  Report Type: Spontaneous
  Country: RU (occurrence: RU)
  Receive Date: 20180125
  Receipt Date: 20180125
  Transmission Date: 20180509
  Serious: Yes (Hospitalization, Other)
  Sender: FDA-Public Use
  Company Number: RU-ASTRAZENECA-2018SE08304

PATIENT

DRUGS (1)
  1. IRESSA [Suspect]
     Active Substance: GEFITINIB
     Indication: GENE MUTATION
     Route: 048
     Dates: start: 201712

REACTIONS (2)
  - Pulmonary haemorrhage [Unknown]
  - Haemoptysis [Unknown]
